FAERS Safety Report 8188153-3 (Version None)
Quarter: 2012Q1

REPORT INFORMATION
  Report Type: 
  Country: None (occurrence: None)
  Receive Date: 20120306
  Receipt Date: 20120228
  Transmission Date: 20120608
  Serious: Yes (Disabling, Other)
  Sender: FDA-Public Use
  Company Number: FI-JNJFOC-20120300763

PATIENT

DRUGS (1)
  1. ABCIXIMAB [Suspect]
     Indication: EMBOLISM
     Route: 013

REACTIONS (1)
  - THROMBOSIS IN DEVICE [None]
